FAERS Safety Report 5449778-9 (Version None)
Quarter: 2007Q3

REPORT INFORMATION
  Report Type: 
  Country: None (occurrence: None)
  Receive Date: 20070910
  Receipt Date: 20070910
  Transmission Date: 20080115
  Serious: Yes (Hospitalization)
  Sender: FDA-Public Use
  Company Number: None

PATIENT
  Sex: Male
  Weight: 84 kg

DRUGS (11)
  1. TARCEVA [Suspect]
     Indication: GLIOBLASTOMA MULTIFORME
     Dosage: 400MG ONCE DAILY MOUTH
     Route: 048
     Dates: start: 20070702, end: 20070823
  2. RAPAMUNE [Suspect]
     Indication: GLIOBLASTOMA MULTIFORME
     Dosage: 10MG ONCE DAILY MOUTH
     Route: 048
     Dates: start: 20070702, end: 20070823
  3. DECADRON [Concomitant]
  4. DILANTIN [Concomitant]
  5. HYDROCHLOROTHIAZIDE [Concomitant]
  6. KEPPRA [Concomitant]
  7. LIPITOR [Concomitant]
  8. MINOCYCLINE HCL [Concomitant]
  9. ZANTAC 150 [Concomitant]
  10. COLACE [Concomitant]
  11. ATIVAN [Concomitant]

REACTIONS (7)
  - CONVULSION [None]
  - DYSKINESIA [None]
  - FAECAL INCONTINENCE [None]
  - MUSCULAR WEAKNESS [None]
  - NEOPLASM PROGRESSION [None]
  - NEUROPATHY [None]
  - URINARY INCONTINENCE [None]
